FAERS Safety Report 14094433 (Version 3)
Quarter: 2017Q4

REPORT INFORMATION
  Report Type: Report from Study
  Country: US (occurrence: US)
  Receive Date: 20171016
  Receipt Date: 20171120
  Transmission Date: 20180321
  Serious: Yes (Death, Hospitalization)
  Sender: FDA-Public Use
  Company Number: US-EXELIXIS-XL18417010792

PATIENT
  Age: 83 Year
  Sex: Male
  Weight: 76.5 kg

DRUGS (3)
  1. IPILIMUMAB [Suspect]
     Active Substance: IPILIMUMAB
     Indication: TRANSITIONAL CELL CARCINOMA
     Dosage: 3 MG/KG, OVER 90 MINUTES ON DAY 1
     Route: 042
     Dates: start: 20170612
  2. XL184 [Suspect]
     Active Substance: CABOZANTINIB
     Indication: TRANSITIONAL CELL CARCINOMA
     Dosage: 40 MG, QD
     Route: 048
     Dates: start: 20170612, end: 20170702
  3. NIVOLUMAB [Suspect]
     Active Substance: NIVOLUMAB
     Indication: TRANSITIONAL CELL CARCINOMA
     Dosage: 1 MG/KG, OVER 60 MINUTES ON DAY 1 AND 15
     Route: 042
     Dates: start: 20170612

REACTIONS (5)
  - Platelet count decreased [Unknown]
  - Anaemia [Unknown]
  - Disseminated intravascular coagulation [Unknown]
  - Pyrexia [Unknown]
  - Malignant neoplasm progression [Fatal]

NARRATIVE: CASE EVENT DATE: 20170716
